FAERS Safety Report 8312032-1 (Version None)
Quarter: 2012Q2

REPORT INFORMATION
  Report Type: 
  Country: None (occurrence: None)
  Receive Date: 20120425
  Receipt Date: 20120412
  Transmission Date: 20120825
  Serious: Yes (Hospitalization, Other)
  Sender: FDA-Public Use
  Company Number: US-ELI_LILLY_AND_COMPANY-US201204004822

PATIENT
  Sex: Female

DRUGS (4)
  1. CYMBALTA [Suspect]
     Dosage: 30 MG, QD
     Dates: start: 20120329, end: 20120412
  2. FOSAMAX [Concomitant]
  3. LEVOTHYROXINE SODIUM [Concomitant]
  4. CYMBALTA [Suspect]
     Indication: FIBROMYALGIA
     Dosage: 60 MG, QD
     Dates: start: 20110831, end: 20120329

REACTIONS (4)
  - NEOPLASM MALIGNANT [None]
  - HEPATOTOXICITY [None]
  - HOSPITALISATION [None]
  - ANXIETY [None]
